FAERS Safety Report 26170350 (Version 1)
Quarter: 2025Q4

REPORT INFORMATION
  Report Type: Spontaneous
  Country: US (occurrence: US)
  Receive Date: 20251217
  Receipt Date: 20251217
  Transmission Date: 20260118
  Serious: Yes (Hospitalization, Other)
  Sender: NOVO NORDISK
  Company Number: US-NOVOPROD-1583755

PATIENT
  Age: 45 Year
  Sex: Female

DRUGS (3)
  1. RYBELSUS [Suspect]
     Active Substance: SEMAGLUTIDE
     Indication: Latent autoimmune diabetes in adults
     Dosage: 3 MG, QD
     Route: 048
     Dates: start: 202408, end: 202410
  2. VICTOZA [Concomitant]
     Active Substance: LIRAGLUTIDE
     Dosage: 1.2 MG
  3. VICTOZA [Concomitant]
     Active Substance: LIRAGLUTIDE
     Indication: Latent autoimmune diabetes in adults
     Dosage: 7 CLICKS
     Dates: start: 2020

REACTIONS (3)
  - Ketoacidosis [Recovered/Resolved]
  - Diabetes mellitus inadequate control [Unknown]
  - Product use in unapproved indication [Unknown]

NARRATIVE: CASE EVENT DATE: 20240101
